FAERS Safety Report 9204198 (Version 2)
Quarter: 2014Q1

REPORT INFORMATION
  Report Type: Report from Study
  Country: JP (occurrence: JP)
  Receive Date: 20130402
  Receipt Date: 20140217
  Transmission Date: 20141002
  Serious: Yes (Hospitalization)
  Sender: FDA-Public Use
  Company Number: JP-PFIZER INC-2013100187

PATIENT
  Age: 41 Year
  Sex: Female
  Weight: 68.2 kg

DRUGS (20)
  1. XALKORI [Suspect]
     Indication: NON-SMALL CELL LUNG CANCER
     Dosage: 250 MG, 2X/DAY
     Route: 048
     Dates: start: 20120612, end: 20120731
  2. XALKORI [Suspect]
     Dosage: 250 MG, 2X/DAY
     Route: 048
     Dates: start: 20120810, end: 20130317
  3. ADOAIR [Concomitant]
     Dosage: 500 UG, 2X/DAY
     Route: 055
  4. KIPRES [Concomitant]
     Dosage: 10 MG, 1X/DAY
     Route: 048
  5. PREDONINE [Concomitant]
     Dosage: 35 MG, 1X/DAY
     Route: 048
     Dates: start: 20120712, end: 20120725
  6. PREDONINE [Concomitant]
     Dosage: 20 MG, 1X/DAY
     Route: 048
     Dates: start: 20120726, end: 20120813
  7. PREDONINE [Concomitant]
     Dosage: 15 MG, 1X/DAY
     Route: 048
     Dates: start: 20120814, end: 20120823
  8. PREDONINE [Concomitant]
     Dosage: 10 MG, 1X/DAY
     Route: 048
     Dates: start: 20120824, end: 20120830
  9. PREDONINE [Concomitant]
     Dosage: 35 MG, 1X/DAY
     Route: 048
     Dates: start: 20120831, end: 20120920
  10. PREDONINE [Concomitant]
     Dosage: 40 MG AND 20 MG ONCE RESPECTIVELY DAILY
     Route: 048
     Dates: start: 20120921, end: 20121004
  11. PREDONINE [Concomitant]
     Dosage: 35 MG AND 15 MG ONCE RESPECTIVELY DAILY
     Route: 048
     Dates: start: 20121005, end: 20121012
  12. PREDONINE [Concomitant]
     Dosage: 30 MG AND 15 MG ONCE RESPECTIVELY DAILY
     Route: 048
     Dates: start: 20121013, end: 20121021
  13. PREDONINE [Concomitant]
     Dosage: 25 MG AND 15 MG ONCE RESPECTIVELY DAILY
     Route: 048
     Dates: start: 20121022, end: 20121101
  14. PREDONINE [Concomitant]
     Dosage: 25 MG AND 10 MG ONCE RESPECTIVELY DAILY
     Route: 048
     Dates: start: 20121102, end: 20121121
  15. TAKEPRON OD [Concomitant]
     Dosage: 30 MG, 1X/DAY
     Route: 048
     Dates: start: 20120830
  16. LASIX [Concomitant]
     Dosage: 20 MG, 1X/DAY
     Route: 048
     Dates: start: 20120814, end: 20120907
  17. LASIX [Concomitant]
     Dosage: 20 MG, 2X/DAY
     Route: 048
     Dates: start: 20120914, end: 20130214
  18. LASIX [Concomitant]
     Dosage: 20 MG, 3X/DAY
     Route: 048
     Dates: start: 20130215, end: 20130313
  19. LASIX [Concomitant]
     Dosage: 100 MG (40MG, 40MG AND 20 MG) DAILY
     Route: 048
     Dates: start: 20130314, end: 20130318
  20. CELECOX [Concomitant]
     Dosage: 100 MG, 2X/DAY
     Route: 048
     Dates: start: 20121001

REACTIONS (1)
  - Bronchitis [Recovered/Resolved]
